FAERS Safety Report 18537420 (Version 1)
Quarter: 2020Q4

REPORT INFORMATION
  Report Type: Spontaneous
  Country: US (occurrence: US)
  Receive Date: 20201123
  Receipt Date: 20201123
  Transmission Date: 20210114
  Serious: No
  Sender: FDA-Public Use
  Company Number: US-PERRIGO-20US016357

PATIENT
  Age: 90 Year
  Sex: Male
  Weight: 96.15 kg

DRUGS (8)
  1. POLYETHYLENE GLYCOL 3350. [Suspect]
     Active Substance: POLYETHYLENE GLYCOL 3350
     Indication: CONSTIPATION
     Dosage: 17 G, QD
     Route: 048
     Dates: end: 2020
  2. ASPIRIN                            /00002701/ [Concomitant]
     Active Substance: ASPIRIN
     Indication: ANTICOAGULANT THERAPY
     Dosage: UNK
     Route: 065
  3. POLYETHYLENE GLYCOL 3350. [Suspect]
     Active Substance: POLYETHYLENE GLYCOL 3350
     Dosage: 17 G, QD PRN
     Route: 048
     Dates: start: 2020, end: 20200730
  4. PLAVIX [Concomitant]
     Active Substance: CLOPIDOGREL BISULFATE
     Indication: ANTICOAGULANT THERAPY
     Dosage: UNK
     Route: 065
  5. POLYETHYLENE GLYCOL 3350. [Suspect]
     Active Substance: POLYETHYLENE GLYCOL 3350
     Dosage: APPROX. 2 OZ, ONCE
     Route: 048
     Dates: start: 20200731, end: 20200731
  6. ANTIINFLAMMATORY AGENTS [Concomitant]
     Active Substance: UNSPECIFIED INGREDIENT
     Indication: PERIPHERAL SWELLING
     Dosage: UNK
     Route: 065
  7. ANTIHYPERTENSIVES [Concomitant]
     Active Substance: UNSPECIFIED INGREDIENT
     Indication: ANTICOAGULANT THERAPY
     Dosage: UNK
     Route: 065
  8. POLYETHYLENE GLYCOL 3350. [Suspect]
     Active Substance: POLYETHYLENE GLYCOL 3350
     Dosage: 17 G, TWICE
     Route: 048
     Dates: start: 20200803, end: 20200803

REACTIONS (6)
  - Wrong technique in product usage process [Recovered/Resolved]
  - Incorrect product administration duration [Recovered/Resolved]
  - Dry eye [Not Recovered/Not Resolved]
  - Inappropriate schedule of product administration [Recovered/Resolved]
  - Urinary retention [Not Recovered/Not Resolved]
  - Incorrect dose administered [Recovered/Resolved]

NARRATIVE: CASE EVENT DATE: 2018
